FAERS Safety Report 21884035 (Version 3)
Quarter: 2023Q1

REPORT INFORMATION
  Report Type: Spontaneous
  Country: TR (occurrence: TR)
  Receive Date: 20230119
  Receipt Date: 20230203
  Transmission Date: 20230417
  Serious: Yes (Other)
  Sender: FDA-Public Use
  Company Number: TR-002147023-NVSC2023TR008630

PATIENT
  Age: 71 Year
  Sex: Female

DRUGS (4)
  1. ENALAPRIL MALEATE [Suspect]
     Active Substance: ENALAPRIL MALEATE
     Indication: Blood pressure abnormal
     Dosage: 20 MG, QD (1X1)
     Route: 065
     Dates: start: 2012
  2. ENALAPRIL [Suspect]
     Active Substance: ENALAPRIL
     Indication: Blood pressure abnormal
     Dosage: 2 DOSAGE FORM, QD (1X2), IN USE FOR 10 DAYS
     Route: 065
  3. NORVASC [Concomitant]
     Active Substance: AMLODIPINE BESYLATE
     Indication: Product used for unknown indication
     Dosage: UNK (IN USE FOR 7 OR 8 YEARS)
     Route: 065
  4. BELOC [Concomitant]
     Indication: Product used for unknown indication
     Dosage: UNK, IN USE FOR 7 OR 8 YEARS
     Route: 065

REACTIONS (4)
  - Hypertension [Recovering/Resolving]
  - Blood pressure fluctuation [Unknown]
  - Product supply issue [Unknown]
  - Blood cholesterol increased [Unknown]
